FAERS Safety Report 18085695 (Version 1)
Quarter: 2020Q3

REPORT INFORMATION
  Report Type: Spontaneous
  Country: US (occurrence: US)
  Receive Date: 20200728
  Receipt Date: 20200728
  Transmission Date: 20201103
  Serious: No
  Sender: FDA-Public Use
  Company Number: None

PATIENT
  Age: 19 Year
  Weight: 109.8 kg

DRUGS (1)
  1. MEDROXYPROGESTERONE ACETATE 150MG/ML, 1ML [Suspect]
     Active Substance: MEDROXYPROGESTERONE ACETATE
     Indication: GENDER DYSPHORIA
     Dosage: ?          QUANTITY:1 INJECTION(S);OTHER FREQUENCY:1ML Q 6 MONTH;?
     Route: 030

REACTIONS (1)
  - Middle insomnia [None]

NARRATIVE: CASE EVENT DATE: 20200415
